FAERS Safety Report 25369229 (Version 1)
Quarter: 2025Q2

REPORT INFORMATION
  Report Type: Spontaneous
  Country: US (occurrence: None)
  Receive Date: 20250527
  Receipt Date: 20250527
  Transmission Date: 20250716
  Serious: Yes (unspecified)
  Sender: FDA-CTU
  Company Number: None

PATIENT
  Age: 70 Year
  Sex: Male

DRUGS (19)
  1. CETIRIZINE [Suspect]
     Active Substance: CETIRIZINE HYDROCHLORIDE
     Indication: Multiple allergies
     Dosage: FREQUENCY : AT BEDTIME;?
     Route: 048
     Dates: start: 20180101
  2. NAPROXEN [Concomitant]
     Active Substance: NAPROXEN
  3. ATORVASTATIN [Concomitant]
     Active Substance: ATORVASTATIN
  4. OXYBUTYNIN [Concomitant]
     Active Substance: OXYBUTYNIN
  5. ASPIRIN [Concomitant]
     Active Substance: ASPIRIN
  6. FINASTERIDE [Concomitant]
     Active Substance: FINASTERIDE
  7. TERAZOSIN [Concomitant]
     Active Substance: TERAZOSIN HYDROCHLORIDE
  8. PANTOPRAZOLE [Concomitant]
     Active Substance: PANTOPRAZOLE
  9. SUMATRIPTAN [Concomitant]
     Active Substance: SUMATRIPTAN
  10. EPIPEN [Concomitant]
     Active Substance: EPINEPHRINE
  11. FLONASE [Concomitant]
     Active Substance: FLUTICASONE PROPIONATE
  12. ALBUTEROL [Concomitant]
     Active Substance: ALBUTEROL
  13. Hydrocortisone lotion [Concomitant]
  14. Sulfadiazene [Concomitant]
  15. DORZOLAMIDE\TIMOLOL [Concomitant]
     Active Substance: DORZOLAMIDE\TIMOLOL
  16. LATANOPROST [Concomitant]
     Active Substance: LATANOPROST
  17. ALPHA LIPOIC ACID [Concomitant]
     Active Substance: .ALPHA.-LIPOIC ACID
  18. B12 [Concomitant]
  19. CALCIUM CITRATE [Concomitant]
     Active Substance: CALCIUM CITRATE

REACTIONS (4)
  - Pruritus [None]
  - Musculoskeletal discomfort [None]
  - Product use issue [None]
  - Secretion discharge [None]

NARRATIVE: CASE EVENT DATE: 20241101
